FAERS Safety Report 6958707-8 (Version None)
Quarter: 2010Q3

REPORT INFORMATION
  Report Type: 
  Country: None (occurrence: None)
  Receive Date: 20100831
  Receipt Date: 20100817
  Transmission Date: 20110219
  Serious: Yes (Hospitalization, Other)
  Sender: FDA-Public Use
  Company Number: PHHY2010JP51962

PATIENT
  Sex: Male

DRUGS (21)
  1. AFINITOR [Suspect]
     Indication: RENAL CELL CARCINOMA
     Dosage: 10 MG, DAILY
     Route: 048
     Dates: start: 20100513, end: 20100706
  2. MECOBALAMIN [Concomitant]
     Dosage: 1500 ?G, UNK
     Route: 048
     Dates: start: 20080611
  3. ETIZOLAM [Concomitant]
     Dosage: 1MG, UNK
     Route: 048
     Dates: start: 20081023
  4. FLUNITRAZEPAM [Concomitant]
     Dosage: 2MG, UNK
     Route: 048
     Dates: start: 20090106
  5. AMOXAPINE [Concomitant]
     Dosage: 100 MG, UNK
     Route: 048
     Dates: start: 20090107
  6. FENTANYL CITRATE [Concomitant]
     Dosage: THRICE A DAY
     Route: 048
     Dates: start: 20090508
  7. BONALON [Concomitant]
     Dosage: 35 MG, UNK
     Route: 048
     Dates: start: 20090821
  8. GABAPENTIN [Concomitant]
     Dosage: UNK
     Route: 048
     Dates: start: 20091114
  9. PAXIL [Concomitant]
     Dosage: UNK
     Route: 048
     Dates: start: 20100427
  10. AZUNOL [Concomitant]
     Dosage: UNK
     Route: 048
     Dates: start: 20100514
  11. TAKEPRON [Concomitant]
     Dosage: 30 MG, UNK
     Dates: start: 20080807
  12. ROCEPHIN [Concomitant]
     Dosage: 1 G, UNK
     Route: 041
     Dates: start: 20100706, end: 20100710
  13. FINIBAX [Concomitant]
     Dosage: 0.5 G, UNK
     Route: 041
     Dates: start: 20010711, end: 20010716
  14. SOL-MELCORT [Concomitant]
     Dosage: 125 MG, UNK
     Route: 041
     Dates: start: 20100712, end: 20100718
  15. PAZUCROSS [Concomitant]
     Dosage: 600 ML, UNK
     Route: 042
  16. MEROPENEM [Concomitant]
     Dosage: 1 G, UNK
     Route: 042
     Dates: start: 20100722, end: 20100722
  17. TARGOCID [Concomitant]
     Dosage: 800 MG, UNK
     Dates: start: 20100723
  18. TARGOCID [Concomitant]
     Dosage: 400 MG, UNK
     Dates: end: 20100806
  19. MEDROL [Concomitant]
     Dosage: 40 MG, UNK
     Dates: start: 20100719
  20. ZYPREXA [Concomitant]
     Dosage: 5 MG, UNK
     Dates: start: 20100712
  21. ZYPREXA [Concomitant]
     Dosage: 20 MG, UNK

REACTIONS (11)
  - CHEST X-RAY ABNORMAL [None]
  - HAEMOGLOBIN DECREASED [None]
  - HERNIA REPAIR [None]
  - INCISIONAL HERNIA [None]
  - INTERSTITIAL LUNG DISEASE [None]
  - LUNG INFILTRATION [None]
  - PLATELET COUNT DECREASED [None]
  - PNEUMONIA [None]
  - PNEUMONIA BACTERIAL [None]
  - TACHYCARDIA [None]
  - TOTAL LUNG CAPACITY DECREASED [None]
